FAERS Safety Report 8463943-8 (Version None)
Quarter: 2012Q2

REPORT INFORMATION
  Report Type: 
  Country: None (occurrence: None)
  Receive Date: 20120625
  Receipt Date: 20120620
  Transmission Date: 20120825
  Serious: Yes (Other)
  Sender: FDA-Public Use
  Company Number: PHHY2011AU80141

PATIENT
  Sex: Female

DRUGS (1)
  1. ZOLEDRONOC ACID [Suspect]
     Indication: OSTEOPOROSIS
     Dosage: 5 MG, UNK
     Route: 042
     Dates: start: 20110902

REACTIONS (9)
  - PIGMENTATION DISORDER [None]
  - ABDOMINAL PAIN UPPER [None]
  - NASOPHARYNGITIS [None]
  - INFLAMMATION [None]
  - INFLUENZA LIKE ILLNESS [None]
  - ORAL DISCOMFORT [None]
  - PAIN IN EXTREMITY [None]
  - PAIN [None]
  - ABDOMINAL PAIN [None]
